FAERS Safety Report 25349951 (Version 2)
Quarter: 2025Q3

REPORT INFORMATION
  Report Type: Report from Study
  Country: ZA (occurrence: ZA)
  Receive Date: 20250523
  Receipt Date: 20250809
  Transmission Date: 20251020
  Serious: Yes (Death)
  Sender: ALEXION PHARMACEUTICALS
  Company Number: ZA-AstraZeneca-CH-00874417A

PATIENT
  Age: 76 Year
  Sex: Female

DRUGS (8)
  1. BUDESONIDE\FORMOTEROL [Suspect]
     Active Substance: BUDESONIDE\FORMOTEROL
     Indication: Emphysema
  2. EUTHYROX [Concomitant]
     Active Substance: LEVOTHYROXINE SODIUM
     Indication: Hypothyroidism
  3. Spiractin [Concomitant]
     Indication: Hypertension
  4. Spiractin [Concomitant]
     Indication: Oedema
  5. Spiractin [Concomitant]
     Indication: Cardiac failure
  6. Spiractin [Concomitant]
     Indication: Hepatic cirrhosis
  7. Spiractin [Concomitant]
     Indication: Renal impairment
  8. PANTOPRAZOLE SODIUM [Concomitant]
     Active Substance: PANTOPRAZOLE SODIUM
     Indication: Gastric ulcer

REACTIONS (1)
  - Death [Fatal]
